FAERS Safety Report 25345969 (Version 1)
Quarter: 2025Q2

REPORT INFORMATION
  Report Type: Spontaneous
  Country: US (occurrence: US)
  Receive Date: 20250522
  Receipt Date: 20250522
  Transmission Date: 20250717
  Serious: Yes (Hospitalization, Other)
  Sender: HIKMA
  Company Number: US-HIKMA PHARMACEUTICALS USA INC.-US-H14001-25-04454

PATIENT
  Age: 26 Year
  Sex: Female

DRUGS (4)
  1. CAPLYTA [Suspect]
     Active Substance: LUMATEPERONE
     Indication: Bipolar I disorder
     Dosage: 42 MILLIGRAM, QD
     Route: 048
     Dates: start: 202503
  2. CAPLYTA [Suspect]
     Active Substance: LUMATEPERONE
     Indication: Mania
  3. LITHIUM [Suspect]
     Active Substance: LITHIUM
     Indication: Bipolar I disorder
     Route: 065
  4. LITHIUM [Suspect]
     Active Substance: LITHIUM
     Indication: Mania
     Route: 065
     Dates: start: 2025

REACTIONS (2)
  - Intentional self-injury [Not Recovered/Not Resolved]
  - Drug ineffective [Unknown]
